FAERS Safety Report 5102041-8 (Version None)
Quarter: 2006Q3

REPORT INFORMATION
  Report Type: 
  Country: None (occurrence: None)
  Receive Date: 20060907
  Receipt Date: 20060818
  Transmission Date: 20061208
  Serious: Yes (Death)
  Sender: FDA-Public Use
  Company Number: US200606002067

PATIENT
  Age: 9 Year
  Sex: Male

DRUGS (1)
  1. STRATTERA [Suspect]
     Indication: ATTENTION DEFICIT/HYPERACTIVITY DISORDER
     Dosage: 40 MG, DAILY (1/D), UNK
     Dates: start: 20040201

REACTIONS (5)
  - ACCIDENTAL DEATH [None]
  - ASPIRATION [None]
  - ELECTROMECHANICAL DISSOCIATION [None]
  - INJURY ASPHYXIATION [None]
  - VOMITING [None]
